FAERS Safety Report 6252871-4 (Version None)
Quarter: 2009Q3

REPORT INFORMATION
  Report Type: 
  Country: None (occurrence: None)
  Receive Date: 20090701
  Receipt Date: 20090622
  Transmission Date: 20100115
  Serious: Yes (Other)
  Sender: FDA-Public Use
  Company Number: B0578264A

PATIENT
  Age: 57 Year
  Sex: Female

DRUGS (2)
  1. ALLI [Suspect]
     Dosage: 60MG THREE TIMES PER DAY
     Route: 065
  2. HORMONE PILL [Concomitant]

REACTIONS (5)
  - AGGRESSION [None]
  - MALAISE [None]
  - NERVOUSNESS [None]
  - PALPITATIONS [None]
  - PANIC REACTION [None]
